FAERS Safety Report 6822514-7 (Version None)
Quarter: 2010Q3

REPORT INFORMATION
  Report Type: 
  Country: None (occurrence: None)
  Receive Date: 20100708
  Receipt Date: 20100705
  Transmission Date: 20110219
  Serious: Yes (Other)
  Sender: FDA-Public Use
  Company Number: FR-BRISTOL-MYERS SQUIBB COMPANY-15178510

PATIENT
  Age: 65 Year
  Sex: Male

DRUGS (2)
  1. BICNU [Suspect]
     Indication: MYCOSIS FUNGOIDES
     Dosage: INTERRUP JAN2010
     Route: 061
     Dates: start: 20090201
  2. CHLORHEXIDINE [Concomitant]

REACTIONS (2)
  - HEADACHE [None]
  - SOMNOLENCE [None]
